FAERS Safety Report 10815085 (Version 1)
Quarter: 2015Q1

REPORT INFORMATION
  Report Type: Report from Study
  Country: KR (occurrence: KR)
  Receive Date: 20150218
  Receipt Date: 20150218
  Transmission Date: 20150721
  Serious: Yes (Hospitalization)
  Sender: FDA-Public Use
  Company Number: KR-GLAXOSMITHKLINE-B0902256A

PATIENT
  Age: 27 Year
  Sex: Male
  Weight: 51 kg

DRUGS (20)
  1. PHENYTOIN. [Concomitant]
     Active Substance: PHENYTOIN
     Indication: SEIZURE
     Route: 048
     Dates: start: 20130613, end: 20130617
  2. BENZYDAMINE [Concomitant]
     Active Substance: BENZYDAMINE
  3. BELIMUMAB [Suspect]
     Active Substance: BELIMUMAB
     Indication: SYSTEMIC LUPUS ERYTHEMATOSUS
     Route: 042
     Dates: start: 20110616
  4. DEXTROMETHORPHAN HYDROBROMIDE. [Concomitant]
     Active Substance: DEXTROMETHORPHAN HYDROBROMIDE
     Indication: ATYPICAL PNEUMONIA
  5. METHYLPREDNISOLONE. [Concomitant]
     Active Substance: METHYLPREDNISOLONE
  6. CLARITHROMYCIN. [Concomitant]
     Active Substance: CLARITHROMYCIN
  7. REBAMIPIDE [Concomitant]
     Active Substance: REBAMIPIDE
  8. CODEINE [Concomitant]
     Active Substance: CODEINE
  9. LOPERAMIDE HCL [Concomitant]
     Active Substance: LOPERAMIDE HYDROCHLORIDE
  10. NORMAL SALINE [Concomitant]
     Active Substance: SODIUM CHLORIDE
  11. THEOBROMINE [Concomitant]
     Active Substance: THEOBROMINE
  12. BUCILLAMINE [Concomitant]
     Active Substance: BUCILLAMINE
     Route: 048
     Dates: start: 20130613, end: 20130617
  13. AZITHROMYCIN [Concomitant]
     Active Substance: AZITHROMYCIN ANHYDROUS
  14. CALCIUM CARBONATE. [Concomitant]
     Active Substance: CALCIUM CARBONATE
  15. DIOCTAHEDRAL SMECTITE [Concomitant]
  16. CLOPERASTINE FEBDIZOATE [Concomitant]
  17. CEFTRIAXONE. [Concomitant]
     Active Substance: CEFTRIAXONE
  18. DEXTROMETHORPHAN HYDROBROMIDE. [Concomitant]
     Active Substance: DEXTROMETHORPHAN HYDROBROMIDE
     Indication: ACUTE TONSILLITIS
     Dates: start: 20130613
  19. ACETAMINOPHEN. [Concomitant]
     Active Substance: ACETAMINOPHEN
  20. DENOGAN [Concomitant]

REACTIONS (1)
  - Acute tonsillitis [Recovered/Resolved]

NARRATIVE: CASE EVENT DATE: 20130606
